FAERS Safety Report 23455994 (Version 1)
Quarter: 2024Q1

REPORT INFORMATION
  Report Type: Spontaneous
  Country: DE (occurrence: DE)
  Receive Date: 20240130
  Receipt Date: 20240130
  Transmission Date: 20240410
  Serious: Yes (Other)
  Sender: FDA-Public Use
  Company Number: None

PATIENT
  Age: 51 Year
  Sex: Male
  Weight: 118 kg

DRUGS (26)
  1. CANDESARTAN [Interacting]
     Active Substance: CANDESARTAN
     Indication: Hypertension
     Dosage: MORNING 8MG, AFTERNOON 4MG AFTERNOON 4MG?DAILY DOSE: 16 MILLIGRAM
  2. QUETIAPINE [Interacting]
     Active Substance: QUETIAPINE
     Indication: Insomnia
     Dosage: 25-50MG IF NECESSARY TO CALM DOWN
  3. QUETIAPINE [Interacting]
     Active Substance: QUETIAPINE
     Indication: Insomnia
     Dosage: AT BEDTIME?DAILY DOSE: 100 MILLIGRAM
  4. OLANZAPINE [Interacting]
     Active Substance: OLANZAPINE
     Indication: Product used for unknown indication
  5. PROPRANOLOL [Interacting]
     Active Substance: PROPRANOLOL HYDROCHLORIDE
     Indication: Tremor
  6. RAMIPRIL [Interacting]
     Active Substance: RAMIPRIL
     Indication: Hypertension
  7. SILDENAFIL [Interacting]
     Active Substance: SILDENAFIL
     Indication: Product used for unknown indication
  8. NEBIVOLOL [Interacting]
     Active Substance: NEBIVOLOL
     Indication: Hypertension
     Dosage: 2.5MG MORNING AND NIGHT?DAILY DOSE: 5 MILLIGRAM
  9. CLOZAPINE [Interacting]
     Active Substance: CLOZAPINE
     Indication: Product used for unknown indication
  10. MELATONIN [Interacting]
     Active Substance: MELATONIN
     Indication: Product used for unknown indication
  11. RABEPRAZOLE [Interacting]
     Active Substance: RABEPRAZOLE
     Indication: Gastric pH increased
     Dosage: MORNING?DAILY DOSE: 20 MILLIGRAM
  12. CHLORPROTHIXENE [Interacting]
     Active Substance: CHLORPROTHIXENE
     Indication: Insomnia
     Dosage: 100MG AT BEDTIME FOR SLEEP?DAILY DOSE: 100 MILLIGRAM
  13. PROMETHAZINE HYDROCHLORIDE [Interacting]
     Active Substance: PROMETHAZINE HYDROCHLORIDE
     Indication: Sedation
  14. PROMETHAZINE HYDROCHLORIDE [Interacting]
     Active Substance: PROMETHAZINE HYDROCHLORIDE
     Indication: Sedation
  15. FLUPENTIXOL [Interacting]
     Active Substance: FLUPENTIXOL
     Indication: Psychotic disorder
     Dosage: MORNING: 5MG; EVENING: 6 MG; NIGHT: 2MG?DAILY DOSE: 13 MILLIGRAM
  16. CARIPRAZINE [Interacting]
     Active Substance: CARIPRAZINE
     Indication: Psychotic disorder
  17. TAVOR (LORAZEPAM) [Interacting]
     Active Substance: LORAZEPAM
     Indication: Anxiety
  18. TAVOR (LORAZEPAM) [Interacting]
     Active Substance: LORAZEPAM
     Indication: Sedation
  19. ZELDOX [Interacting]
     Active Substance: ZIPRASIDONE
     Indication: Sedation
  20. BROMAZEPAM [Interacting]
     Active Substance: BROMAZEPAM
     Indication: Sedation
     Dosage: 3MG IF NECESSARY FOR SEDATION/ANXIETY
  21. BROMAZEPAM [Interacting]
     Active Substance: BROMAZEPAM
     Indication: Anxiety
     Dosage: 3MG IF NECESSARY FOR SEDATION/ANXIETY
  22. ABILIFY [Interacting]
     Active Substance: ARIPIPRAZOLE
     Indication: Product used for unknown indication
  23. NAPROXEN [Interacting]
     Active Substance: NAPROXEN
     Indication: Anxiety
     Dosage: 500MG IF NECESSARY FOR KNEE PAIN
  24. NAPROXEN [Interacting]
     Active Substance: NAPROXEN
     Indication: Arthralgia
     Dosage: 500MG IF NECESSARY FOR KNEE PAIN
  25. RISPERDAL [Interacting]
     Active Substance: RISPERIDONE
     Indication: Sedation
     Dosage: MORNING 4MG, NIGHT 5MG NIGHT 5MG?DAILY DOSE: 14 MILLIGRAM
  26. RISPERDAL [Interacting]
     Active Substance: RISPERIDONE
     Indication: Sedation

REACTIONS (11)
  - Suicidal ideation [Unknown]
  - Condition aggravated [Unknown]
  - Drug interaction [Unknown]
  - Parkinsonism [Unknown]
  - Blood pressure increased [Unknown]
  - Flatulence [Unknown]
  - Impaired work ability [Unknown]
  - Brain fog [Unknown]
  - Dizziness [Unknown]
  - Tremor [Unknown]
  - Somnolence [Unknown]
